FAERS Safety Report 23189937 (Version 2)
Quarter: 2023Q4

REPORT INFORMATION
  Report Type: Report from Study
  Country: CL (occurrence: CL)
  Receive Date: 20231116
  Receipt Date: 20231229
  Transmission Date: 20240110
  Serious: Yes (Other)
  Sender: FDA-Public Use
  Company Number: CL-JNJFOC-20231121751

PATIENT
  Age: 79 Year
  Sex: Female

DRUGS (1)
  1. SIMPONI [Suspect]
     Active Substance: GOLIMUMAB
     Indication: Rheumatoid arthritis
     Dosage: LAST ADHERENCE RECORDED: 01-OCT-2023;? LAST ADHERENCE NOT ADMINISTERED.
     Route: 058
     Dates: start: 20200904

REACTIONS (1)
  - Acute myeloid leukaemia [Unknown]
